FAERS Safety Report 25588079 (Version 1)
Quarter: 2025Q3

REPORT INFORMATION
  Report Type: Report from Study
  Country: CA (occurrence: CA)
  Receive Date: 20250722
  Receipt Date: 20250722
  Transmission Date: 20251020
  Serious: Yes (Hospitalization)
  Sender: ABBVIE
  Company Number: CA-ABBVIE-6377022

PATIENT
  Age: 15 Year
  Sex: Male

DRUGS (1)
  1. RINVOQ [Suspect]
     Active Substance: UPADACITINIB
     Indication: Crohn^s disease
     Dosage: 30MG
     Route: 048
     Dates: start: 20240104

REACTIONS (7)
  - Intestinal anastomosis [Recovering/Resolving]
  - Postoperative adhesion [Recovering/Resolving]
  - Scar [Recovering/Resolving]
  - Small intestinal obstruction [Recovering/Resolving]
  - Sepsis [Recovering/Resolving]
  - Shock [Recovering/Resolving]
  - Post procedural complication [Recovering/Resolving]

NARRATIVE: CASE EVENT DATE: 20250101
